FAERS Safety Report 15719039 (Version 2)
Quarter: 2018Q4

REPORT INFORMATION
  Report Type: Spontaneous
  Country: JP (occurrence: JP)
  Receive Date: 20181213
  Receipt Date: 20181214
  Transmission Date: 20190205
  Serious: Yes (Other)
  Sender: FDA-Public Use
  Company Number: JP-JNJFOC-20181040253

PATIENT

DRUGS (4)
  1. REVLIMID [Concomitant]
     Active Substance: LENALIDOMIDE
     Indication: PLASMA CELL MYELOMA
     Route: 065
  2. DARZALEX [Suspect]
     Active Substance: DARATUMUMAB
     Indication: PLASMA CELL MYELOMA
     Route: 041
  3. DEXAMETHASONE. [Concomitant]
     Active Substance: DEXAMETHASONE
     Indication: PLASMA CELL MYELOMA
     Route: 065
  4. VELCADE [Suspect]
     Active Substance: BORTEZOMIB
     Indication: PLASMA CELL MYELOMA
     Route: 058

REACTIONS (18)
  - Atrial fibrillation [Unknown]
  - Depression [Unknown]
  - Oropharyngeal discomfort [Unknown]
  - Cytomegalovirus viraemia [Unknown]
  - Pyrexia [Unknown]
  - Hypoxia [Unknown]
  - Blood pressure decreased [Unknown]
  - Supraventricular tachycardia [Unknown]
  - Neutropenia [Unknown]
  - Rhinorrhoea [Unknown]
  - Thrombocytopenia [Unknown]
  - Liver disorder [Unknown]
  - Infusion related reaction [Unknown]
  - Anaemia [Unknown]
  - Febrile neutropenia [Unknown]
  - Septic shock [Unknown]
  - Tumour lysis syndrome [Unknown]
  - Nausea [Unknown]
